FAERS Safety Report 8516427-2 (Version None)
Quarter: 2012Q3

REPORT INFORMATION
  Report Type: 
  Country: None (occurrence: None)
  Receive Date: 20120718
  Receipt Date: 20120716
  Transmission Date: 20120928
  Serious: Yes (Hospitalization)
  Sender: FDA-Public Use
  Company Number: IT-BRISTOL-MYERS SQUIBB COMPANY-16716334

PATIENT
  Age: 72 Year
  Sex: Male

DRUGS (1)
  1. COUMADIN [Suspect]
     Indication: CARDIAC VALVE PROSTHESIS USER
     Dosage: INTERRUPTED ON 26JUN2012
     Route: 048
     Dates: start: 19860901

REACTIONS (2)
  - ANAEMIA [None]
  - MELAENA [None]
